FAERS Safety Report 5726606-5 (Version None)
Quarter: 2008Q2

REPORT INFORMATION
  Report Type: 
  Country: None (occurrence: None)
  Receive Date: 20080502
  Receipt Date: 20080423
  Transmission Date: 20081010
  Serious: Yes (Hospitalization)
  Sender: FDA-Public Use
  Company Number: FR-GILEAD-2008-0016197

PATIENT
  Sex: Female

DRUGS (11)
  1. TRUVADA [Suspect]
     Indication: HIV INFECTION
     Route: 048
     Dates: start: 20060401, end: 20071113
  2. TRUVADA [Suspect]
     Dates: start: 20071124
  3. KALETRA [Concomitant]
     Indication: HIV INFECTION
     Route: 048
     Dates: start: 20060401, end: 20071113
  4. KALETRA [Concomitant]
     Dates: start: 20071124
  5. RIFADIN [Concomitant]
     Route: 048
     Dates: start: 20071109, end: 20071113
  6. BACTRIM [Concomitant]
  7. TARDYFERON [Concomitant]
  8. FOLIC ACID [Concomitant]
  9. MYAMBUTOL [Concomitant]
  10. RIMIFON [Concomitant]
  11. PIRILENE [Concomitant]

REACTIONS (11)
  - AIDS ENCEPHALOPATHY [None]
  - ANOREXIA [None]
  - ASTHENIA [None]
  - HEADACHE [None]
  - MENINGITIS ASEPTIC [None]
  - MENTAL DISORDER [None]
  - PAIN [None]
  - PYREXIA [None]
  - RASH MACULO-PAPULAR [None]
  - TRANSAMINASES INCREASED [None]
  - VOMITING [None]
